FAERS Safety Report 14513139 (Version 3)
Quarter: 2018Q2

REPORT INFORMATION
  Report Type: Spontaneous
  Country: DE (occurrence: DE)
  Receive Date: 20180209
  Receipt Date: 20180606
  Transmission Date: 20180711
  Serious: Yes (Hospitalization, Other)
  Sender: FDA-Public Use
  Company Number: DE-MYLANLABS-2014S1005692

PATIENT
  Age: 41 Year
  Sex: Female

DRUGS (3)
  1. GEMCITABINE [Suspect]
     Active Substance: GEMCITABINE\GEMCITABINE HYDROCHLORIDE
     Indication: LUNG ADENOCARCINOMA
     Dosage: UNK UNK, 3XW
     Route: 065
  2. CISPLATIN. [Suspect]
     Active Substance: CISPLATIN
     Indication: LUNG ADENOCARCINOMA
     Dosage: UNK UNK, 3XW
     Route: 065
  3. BEVACIZUMAB. [Suspect]
     Active Substance: BEVACIZUMAB
     Indication: LUNG ADENOCARCINOMA
     Dosage: UNK UNK, 3XW
     Route: 065

REACTIONS (10)
  - Hallucination, visual [Recovering/Resolving]
  - Nausea [Recovering/Resolving]
  - Partial seizures [Recovered/Resolved]
  - Headache [Recovering/Resolving]
  - Generalised tonic-clonic seizure [Recovered/Resolved]
  - Posterior reversible encephalopathy syndrome [Recovering/Resolving]
  - Ataxia [Recovering/Resolving]
  - Confusional state [Recovering/Resolving]
  - Blood pressure increased [Recovering/Resolving]
  - Vomiting [Recovering/Resolving]
